FAERS Safety Report 7120863-9 (Version None)
Quarter: 2010Q4

REPORT INFORMATION
  Report Type: 
  Country: None (occurrence: None)
  Receive Date: 20101124
  Receipt Date: 20091229
  Transmission Date: 20110411
  Serious: Yes (Other)
  Sender: FDA-Public Use
  Company Number: US-PFIZER INC-2009316219

PATIENT
  Sex: Female
  Weight: 68.934 kg

DRUGS (5)
  1. TIKOSYN [Suspect]
     Indication: ATRIAL FIBRILLATION
     Dosage: 0.125 MG, 2X/DAY
     Route: 048
     Dates: start: 20091116
  2. TIKOSYN [Suspect]
     Indication: ATRIAL FLUTTER
  3. OMEPRAZOLE [Concomitant]
  4. PREDNISONE [Concomitant]
  5. SYNTHROID [Concomitant]

REACTIONS (5)
  - BLOOD PRESSURE ABNORMAL [None]
  - CHEST PAIN [None]
  - FATIGUE [None]
  - INTENTIONAL DRUG MISUSE [None]
  - PALPITATIONS [None]
